FAERS Safety Report 12926862 (Version 1)
Quarter: 2016Q4

REPORT INFORMATION
  Report Type: Spontaneous
  Country: US (occurrence: US)
  Receive Date: 20161108
  Receipt Date: 20161108
  Transmission Date: 20170207
  Serious: Yes (Other)
  Sender: FDA-Public Use
  Company Number: US-BRISTOL-MYERS SQUIBB COMPANY-BMS-2016-090391

PATIENT
  Sex: Male

DRUGS (4)
  1. CARBIDOPA-LEVODOPA-B [Suspect]
     Active Substance: CARBIDOPA\LEVODOPA
     Indication: PARKINSON^S DISEASE
     Route: 065
  2. COUMADIN [Suspect]
     Active Substance: WARFARIN SODIUM
     Indication: ATRIAL FIBRILLATION
     Route: 048
  3. DOPAMINE [Suspect]
     Active Substance: DOPAMINE\DOPAMINE HYDROCHLORIDE
     Indication: PARKINSON^S DISEASE
     Route: 065
  4. BABY ASPIRIN [Suspect]
     Active Substance: ASPIRIN
     Indication: ATRIAL FIBRILLATION
     Route: 065

REACTIONS (7)
  - Atrial fibrillation [Unknown]
  - Contusion [Unknown]
  - Retinal haemorrhage [Unknown]
  - Drug interaction [Unknown]
  - Macular degeneration [Unknown]
  - International normalised ratio abnormal [Unknown]
  - Epistaxis [Unknown]
